FAERS Safety Report 9307467 (Version 4)
Quarter: 2021Q2

REPORT INFORMATION
  Report Type: Spontaneous
  Country: JP (occurrence: JP)
  Receive Date: 20130524
  Receipt Date: 20210429
  Transmission Date: 20210717
  Serious: Yes (Hospitalization, Other)
  Sender: FDA-Public Use
  Company Number: PHHY2013JP049426

PATIENT
  Age: 22 Year
  Sex: Male

DRUGS (1)
  1. GLIVEC [Suspect]
     Active Substance: IMATINIB MESYLATE
     Indication: CHRONIC MYELOID LEUKAEMIA
     Dosage: UNK
     Route: 048
     Dates: end: 200904

REACTIONS (6)
  - Optic nerve disorder [Unknown]
  - Pyrexia [Unknown]
  - Visual impairment [Recovered/Resolved]
  - Blast crisis in myelogenous leukaemia [Unknown]
  - Chromosome analysis abnormal [Unknown]
  - Headache [Unknown]

NARRATIVE: CASE EVENT DATE: 20090401
